FAERS Safety Report 7605660-X (Version None)
Quarter: 2011Q3

REPORT INFORMATION
  Report Type: 
  Country: None (occurrence: None)
  Receive Date: 20110713
  Receipt Date: 20110630
  Transmission Date: 20111222
  Serious: Yes (Hospitalization)
  Sender: FDA-Public Use
  Company Number: US-BAYER-2010-004029

PATIENT
  Age: 32 Year
  Sex: Female
  Weight: 74.83 kg

DRUGS (6)
  1. RELPAX [Concomitant]
     Indication: MIGRAINE
     Dosage: 40 MG, UNK
  2. IMODIUM [Concomitant]
     Indication: DIARRHOEA
  3. YASMIN [Suspect]
     Indication: CONTRACEPTION
     Dosage: UNK
     Route: 048
     Dates: start: 20030701, end: 20091101
  4. YAZ [Suspect]
     Indication: CONTRACEPTION
     Dosage: UNK
     Route: 048
     Dates: start: 20030701, end: 20091101
  5. CALCIUM CARBONATE [Concomitant]
     Dosage: 1200 MG, UNK
  6. MULTI-VITAMINS [Concomitant]

REACTIONS (6)
  - BILIARY DYSKINESIA [None]
  - MENTAL DISORDER [None]
  - ABDOMINAL PAIN [None]
  - DIARRHOEA [None]
  - EMOTIONAL DISTRESS [None]
  - NAUSEA [None]
